FAERS Safety Report 8308773-2 (Version None)
Quarter: 2012Q2

REPORT INFORMATION
  Report Type: 
  Country: None (occurrence: None)
  Receive Date: 20120424
  Receipt Date: 20120418
  Transmission Date: 20120825
  Serious: Yes (Hospitalization)
  Sender: FDA-Public Use
  Company Number: DK-PFIZER INC-2012096952

PATIENT
  Age: 70 Year
  Sex: Female
  Weight: 88 kg

DRUGS (6)
  1. RITUXIMAB [Suspect]
     Indication: MALIGNANT LYMPHOID NEOPLASM
     Dosage: 750 MG, UNK
     Route: 042
     Dates: start: 20120320
  2. NEUPOGEN [Suspect]
     Indication: MALIGNANT LYMPHOID NEOPLASM
     Dosage: 6 MG, UNK
     Route: 058
     Dates: start: 20120319
  3. PREDNISONE TAB [Suspect]
     Indication: MALIGNANT LYMPHOID NEOPLASM
     Dosage: 500 MG, UNK
     Route: 048
     Dates: start: 20120320
  4. DOXORUBICIN HCL [Suspect]
     Indication: MALIGNANT LYMPHOID NEOPLASM
     Dosage: 100 MG, UNK
     Route: 042
     Dates: start: 20120320
  5. CYCLOPHOSPHAMIDE [Suspect]
     Indication: MALIGNANT LYMPHOID NEOPLASM
     Dosage: 1500 MG, UNK
     Route: 042
     Dates: start: 20120320
  6. VINCRISTINE [Suspect]
     Indication: MALIGNANT LYMPHOID NEOPLASM
     Dosage: 2 MG, UNK
     Route: 042
     Dates: start: 20120320

REACTIONS (1)
  - FEBRILE NEUTROPENIA [None]
